FAERS Safety Report 7304428-1 (Version None)
Quarter: 2011Q1

REPORT INFORMATION
  Report Type: 
  Country: None (occurrence: None)
  Receive Date: 20110221
  Receipt Date: 20110207
  Transmission Date: 20110831
  Serious: Yes (Hospitalization)
  Sender: FDA-Public Use
  Company Number: US-ELI_LILLY_AND_COMPANY-US201101006601

PATIENT
  Sex: Female
  Weight: 107.48 kg

DRUGS (15)
  1. FUROSEMIDE [Concomitant]
     Indication: HYPERTENSION
     Dates: start: 20000101
  2. CENTRUM SILVER [Concomitant]
     Indication: SUPPLEMENTATION THERAPY
     Dates: start: 19700101
  3. PEMETREXED [Suspect]
     Indication: NON-SMALL CELL LUNG CANCER STAGE III
     Dosage: 500 MG/M2, DAY ONE EVERY 21 DAYS
     Route: 042
     Dates: start: 20100504, end: 20100706
  4. BEVACIZUMAB [Suspect]
     Indication: NON-SMALL CELL LUNG CANCER STAGE III
     Dosage: 15 MG/KG, EVERY 21 DAYS
     Route: 042
     Dates: start: 20100504, end: 20100706
  5. FOLIC ACID [Concomitant]
     Indication: SUPPLEMENTATION THERAPY
     Dates: start: 20100326
  6. PULMICORT [Concomitant]
     Indication: ASTHMA
     Dates: start: 20100301
  7. TEKTURNA HCT [Concomitant]
     Indication: HYPERTENSION
     Dates: start: 20090101
  8. METOLAZONE [Concomitant]
     Indication: HYPERTENSION
  9. CARBOPLATIN [Suspect]
     Indication: NON-SMALL CELL LUNG CANCER STAGE III
     Dosage: 8 D/F, DAY ONE EVERY 21 DAYS 8 AUC
     Route: 042
     Dates: start: 20100504, end: 20100706
  10. PEMETREXED [Suspect]
     Dosage: 500 MG/M2, DAYO NE EVERY 21 DAYS
     Route: 042
     Dates: start: 20100808
  11. BEVACIZUMAB [Suspect]
     Dosage: 15 MG/KG, DAY ONE EVERY 21 DAYS
     Route: 042
     Dates: start: 20100808
  12. VITAMIN B-12 [Concomitant]
     Indication: SUPPLEMENTATION THERAPY
     Dates: start: 20100427
  13. AMLODIPINE BESYLATE AND BENAZEPRIL HYDROCHLORIDE [Concomitant]
     Indication: HYPERTENSION
     Dates: start: 20100301
  14. KCL-RETARD [Concomitant]
     Indication: ELECTROLYTE SUBSTITUTION THERAPY
     Dates: start: 20000101
  15. TRAMADOL HCL [Concomitant]
     Indication: PAIN
     Dates: start: 20100201

REACTIONS (1)
  - POST THROMBOTIC SYNDROME [None]
